FAERS Safety Report 11631077 (Version 1)
Quarter: 2015Q4

REPORT INFORMATION
  Report Type: Spontaneous
  Country: US (occurrence: US)
  Receive Date: 20151014
  Receipt Date: 20151014
  Transmission Date: 20160304
  Serious: No
  Sender: FDA-Public Use
  Company Number: US-INDIVIOR-RB-079498-2015

PATIENT
  Age: 42 Year
  Sex: Male

DRUGS (13)
  1. SUBOXONE [Suspect]
     Active Substance: BUPRENORPHINE HYDROCHLORIDE\NALOXONE HYDROCHLORIDE
     Dosage: 4 MG DAILY8MG AND/OR 2 MG FILM TO ACCOMPLISH DAILY DOSING OF
     Route: 060
     Dates: start: 20150512, end: 20150512
  2. VISTARIL [Suspect]
     Active Substance: HYDROXYZINE PAMOATE
     Indication: PRODUCT USED FOR UNKNOWN INDICATION
     Dosage: UNK
     Route: 048
     Dates: start: 201505, end: 20150512
  3. SUBOXONE [Suspect]
     Active Substance: BUPRENORPHINE HYDROCHLORIDE\NALOXONE HYDROCHLORIDE
     Dosage: 8MG AND/OR 2 MG FILM TO ACCOMPLISH DAILY DOSING OF 12 MG DAILY
     Route: 060
     Dates: start: 20150510, end: 20150510
  4. SUBOXONE [Suspect]
     Active Substance: BUPRENORPHINE HYDROCHLORIDE\NALOXONE HYDROCHLORIDE
     Dosage: 8MG AND/OR 2 MG FILM TO ACCOMPLISH DAILY DOSING OF 4 MG
     Route: 060
     Dates: start: 20150512, end: 20150512
  5. SUBOXONE [Suspect]
     Active Substance: BUPRENORPHINE HYDROCHLORIDE\NALOXONE HYDROCHLORIDE
     Dosage: 8MG AND/OR 2 MG FILM TO ACCOMPLISH DAILY DOSING OF 12 MG
     Route: 060
     Dates: start: 20150510, end: 20150510
  6. SUBOXONE [Suspect]
     Active Substance: BUPRENORPHINE HYDROCHLORIDE\NALOXONE HYDROCHLORIDE
     Dosage: 8MG AND/OR 2 MG FILM TO ACCOMPLISH DAILY DOSING OF 8 MG
     Route: 060
     Dates: start: 20150511, end: 20150511
  7. SUBOXONE [Suspect]
     Active Substance: BUPRENORPHINE HYDROCHLORIDE\NALOXONE HYDROCHLORIDE
     Indication: DRUG DEPENDENCE
     Dosage: 8MG AND/OR 2 MG FILM TO ACCOMPLISH DAILY DOSING OF 8 MG
     Route: 060
     Dates: start: 20150508, end: 20150508
  8. SUBOXONE [Suspect]
     Active Substance: BUPRENORPHINE HYDROCHLORIDE\NALOXONE HYDROCHLORIDE
     Dosage: 8MG AND/OR 2 MG FILM TO ACCOMPLISH DAILY DOSING OF 8 MG DAILY
     Route: 060
     Dates: start: 20150511, end: 20150511
  9. CLONIDINE. [Suspect]
     Active Substance: CLONIDINE
     Indication: PRODUCT USED FOR UNKNOWN INDICATION
     Dosage: UNK
     Route: 048
     Dates: start: 201505, end: 20150512
  10. TRAZODONE [Suspect]
     Active Substance: TRAZODONE HYDROCHLORIDE
     Indication: PRODUCT USED FOR UNKNOWN INDICATION
     Dosage: UNK
     Route: 048
     Dates: start: 201505, end: 20150512
  11. SUBOXONE [Suspect]
     Active Substance: BUPRENORPHINE HYDROCHLORIDE\NALOXONE HYDROCHLORIDE
     Dosage: 8MG AND/OR 2 MG FILM TO ACCOMPLISH DAILY DOSING OF 16 MG
     Route: 060
     Dates: start: 20150509, end: 20150509
  12. SUBOXONE [Suspect]
     Active Substance: BUPRENORPHINE HYDROCHLORIDE\NALOXONE HYDROCHLORIDE
     Dosage: 8MG AND/OR 2 MG FILM TO ACCOMPLISH DAILY DOSING OF 16 MG DAILY
     Route: 060
     Dates: start: 20150509, end: 20150509
  13. SUBOXONE [Suspect]
     Active Substance: BUPRENORPHINE HYDROCHLORIDE\NALOXONE HYDROCHLORIDE
     Indication: DRUG DEPENDENCE
     Dosage: 8MG AND/OR 2 MG FILM TO ACCOMPLISH DAILY DOSING OF 8 MG
     Route: 060
     Dates: start: 20150508, end: 20150508

REACTIONS (5)
  - Drug withdrawal syndrome [Not Recovered/Not Resolved]
  - Memory impairment [Recovered/Resolved]
  - Piloerection [Not Recovered/Not Resolved]
  - Unevaluable event [Not Recovered/Not Resolved]
  - Rhinorrhoea [Not Recovered/Not Resolved]

NARRATIVE: CASE EVENT DATE: 201505
